FAERS Safety Report 11680567 (Version 3)
Quarter: 2015Q4

REPORT INFORMATION
  Report Type: Spontaneous
  Country: US (occurrence: US)
  Receive Date: 20151027
  Receipt Date: 20151110
  Transmission Date: 20160304
  Serious: No
  Sender: FDA-Public Use
  Company Number: US-ELI_LILLY_AND_COMPANY-US201010000088

PATIENT
  Age: 83 Year
  Sex: Female

DRUGS (16)
  1. FORTEO [Suspect]
     Active Substance: TERIPARATIDE
     Dosage: 20 UG, DAILY (1/D)
     Route: 065
  2. FORTEO [Suspect]
     Active Substance: TERIPARATIDE
     Dosage: 20 UG, QD
     Route: 065
  3. DETROL [Concomitant]
     Active Substance: TOLTERODINE TARTRATE
     Dosage: UNK, QD
  4. FORTEO [Suspect]
     Active Substance: TERIPARATIDE
     Dosage: 20 UG, DAILY (1/D)
     Route: 065
  5. FORTEO [Suspect]
     Active Substance: TERIPARATIDE
     Dosage: 20 UG, QD
     Route: 065
  6. MULTIVITAMIN [Concomitant]
     Active Substance: VITAMINS
     Dosage: UNK, UNKNOWN
  7. ZESTRIL [Concomitant]
     Active Substance: LISINOPRIL
     Dosage: UNK, PRN
  8. FORTEO [Suspect]
     Active Substance: TERIPARATIDE
     Indication: OSTEOPOROSIS
     Dosage: 20 UG, DAILY (1/D)
     Route: 065
     Dates: start: 201008, end: 20120331
  9. FORTEO [Suspect]
     Active Substance: TERIPARATIDE
     Dosage: 20 UG, QD
  10. VICODIN [Concomitant]
     Active Substance: ACETAMINOPHEN\HYDROCODONE BITARTRATE
  11. NEXIUM [Concomitant]
     Active Substance: ESOMEPRAZOLE MAGNESIUM
  12. FORTEO [Suspect]
     Active Substance: TERIPARATIDE
     Dosage: 20 UG, QD
  13. CELEBREX [Concomitant]
     Active Substance: CELECOXIB
  14. VITAMIN B12 [Concomitant]
     Active Substance: CYANOCOBALAMIN
     Dosage: UNK, UNKNOWN
  15. FORTEO [Suspect]
     Active Substance: TERIPARATIDE
     Dosage: 20 UG, QD
  16. METHENAMINE HIPPURATE. [Concomitant]
     Active Substance: METHENAMINE HIPPURATE
     Dosage: 1 G, QD

REACTIONS (45)
  - Injection site erythema [Unknown]
  - Malaise [Unknown]
  - Dry skin [Unknown]
  - Alopecia [Recovering/Resolving]
  - Blood iron decreased [Unknown]
  - Fall [Recovered/Resolved]
  - Mobility decreased [Not Recovered/Not Resolved]
  - Bone loss [Not Recovered/Not Resolved]
  - Arthralgia [Not Recovered/Not Resolved]
  - Hair texture abnormal [Unknown]
  - Onychoclasis [Not Recovered/Not Resolved]
  - Musculoskeletal pain [Not Recovered/Not Resolved]
  - Nasopharyngitis [Unknown]
  - Pain in extremity [Not Recovered/Not Resolved]
  - Arthritis [Unknown]
  - Back pain [Unknown]
  - Flank pain [Unknown]
  - Hypoacusis [Unknown]
  - Peripheral swelling [Unknown]
  - Pruritus [Unknown]
  - Erythema [Unknown]
  - Muscular weakness [Unknown]
  - Blood calcium decreased [Unknown]
  - Fatigue [Unknown]
  - Bone loss [Unknown]
  - Limb discomfort [Unknown]
  - Arthritis [Not Recovered/Not Resolved]
  - Pain in extremity [Recovering/Resolving]
  - Pruritus [Recovering/Resolving]
  - Dysgeusia [Unknown]
  - Contusion [Unknown]
  - Pain [Unknown]
  - Vitamin D decreased [Unknown]
  - Weight decreased [Unknown]
  - Myalgia [Not Recovered/Not Resolved]
  - Stress [Unknown]
  - Body height decreased [Unknown]
  - Dizziness [Unknown]
  - Muscle disorder [Unknown]
  - Joint swelling [Unknown]
  - Fall [Recovered/Resolved]
  - Injury [Unknown]
  - Bursitis [Unknown]
  - Rash [Unknown]
  - Pain [Not Recovered/Not Resolved]

NARRATIVE: CASE EVENT DATE: 201012
